APPROVED DRUG PRODUCT: TRILEPTAL
Active Ingredient: OXCARBAZEPINE
Strength: 150MG
Dosage Form/Route: TABLET;ORAL
Application: N021014 | Product #001 | TE Code: AB
Applicant: NOVARTIS PHARMACEUTICALS CORP
Approved: Jan 14, 2000 | RLD: Yes | RS: No | Type: RX